FAERS Safety Report 11073023 (Version 1)
Quarter: 2015Q2

REPORT INFORMATION
  Report Type: Spontaneous
  Country: SE (occurrence: SE)
  Receive Date: 20150428
  Receipt Date: 20150428
  Transmission Date: 20150821
  Serious: Yes (Other)
  Sender: FDA-Public Use
  Company Number: SE-TEVA-556828ISR

PATIENT
  Age: 65 Year
  Sex: Female

DRUGS (1)
  1. TERBINAFINE 250 MILLIGRAM TABLETTER [Suspect]
     Active Substance: TERBINAFINE
     Route: 065

REACTIONS (3)
  - Glossodynia [Not Recovered/Not Resolved]
  - Ageusia [Not Recovered/Not Resolved]
  - Anosmia [Not Recovered/Not Resolved]
